FAERS Safety Report 5314863-9 (Version None)
Quarter: 2007Q2

REPORT INFORMATION
  Report Type: 
  Country: None (occurrence: None)
  Receive Date: 20070426
  Receipt Date: 20070410
  Transmission Date: 20071010
  Serious: Yes (Hospitalization)
  Sender: FDA-Public Use
  Company Number: PAR_1459_2007

PATIENT
  Sex: Female
  Weight: 47.1741 kg

DRUGS (12)
  1. MEGACE [Suspect]
     Indication: INCREASED APPETITE
     Dosage: (ORAL),  (1 DF ORAL)
     Route: 048
     Dates: start: 20061001, end: 20061101
  2. MEGACE [Suspect]
     Indication: IRRITABLE BOWEL SYNDROME
     Dosage: (ORAL),  (1 DF ORAL)
     Route: 048
     Dates: start: 20061001, end: 20061101
  3. MEGACE [Suspect]
     Indication: INCREASED APPETITE
     Dosage: (ORAL),  (1 DF ORAL)
     Route: 048
     Dates: start: 20061201, end: 20061221
  4. MEGACE [Suspect]
     Indication: IRRITABLE BOWEL SYNDROME
     Dosage: (ORAL),  (1 DF ORAL)
     Route: 048
     Dates: start: 20061201, end: 20061221
  5. MEGACE [Suspect]
     Indication: INCREASED APPETITE
     Dosage: (1 DF ORAL)
     Route: 048
     Dates: start: 20070101, end: 20070201
  6. ZELNORM [Concomitant]
  7. LEXAPRO [Concomitant]
  8. ATIVAN [Concomitant]
  9. ADALAT [Concomitant]
  10. OSCAL /00108001/ [Concomitant]
  11. DETROL /01350201/ [Concomitant]
  12. MIACALCIN [Concomitant]

REACTIONS (10)
  - ABDOMINAL PAIN [None]
  - ADRENAL INSUFFICIENCY [None]
  - ANOREXIA [None]
  - ASTHENIA [None]
  - ASTHMA [None]
  - BACK INJURY [None]
  - CHEST PAIN [None]
  - DEHYDRATION [None]
  - DIARRHOEA [None]
  - DRUG INTOLERANCE [None]
